FAERS Safety Report 4284646-X (Version None)
Quarter: 2004Q1

REPORT INFORMATION
  Report Type: 
  Country: None (occurrence: None)
  Receive Date: 20040130
  Receipt Date: 20040116
  Transmission Date: 20041129
  Serious: Yes (Hospitalization)
  Sender: FDA-Public Use
  Company Number: DE_020508812

PATIENT
  Age: 11 Year
  Sex: Female
  Weight: 30 kg

DRUGS (2)
  1. HUMATROPE [Suspect]
     Indication: CONGENITAL HYDROCEPHALUS
     Dosage: 2 IU/7 WEEK
     Dates: start: 19960130, end: 20000901
  2. HUMATROPE [Suspect]
     Indication: SPINA BIFIDA
     Dosage: 2 IU/7 WEEK
     Dates: start: 19960130, end: 20000901

REACTIONS (5)
  - CYST [None]
  - HEADACHE [None]
  - OPISTHOTONUS [None]
  - SPINAL DISORDER [None]
  - VERTIGO [None]
